FAERS Safety Report 7416264-6 (Version None)
Quarter: 2011Q2

REPORT INFORMATION
  Report Type: 
  Country: None (occurrence: None)
  Receive Date: 20110414
  Receipt Date: 20110412
  Transmission Date: 20111010
  Serious: Yes (Death, Hospitalization)
  Sender: FDA-Public Use
  Company Number: A0849348A

PATIENT
  Age: 56 Year
  Sex: Male
  Weight: 88.6 kg

DRUGS (2)
  1. AVANDIA [Suspect]
     Indication: DIABETES MELLITUS
     Dosage: 4MG PER DAY
     Route: 048
  2. AVANDARYL [Suspect]
     Indication: DIABETES MELLITUS
     Route: 048

REACTIONS (4)
  - BLADDER CANCER STAGE IV [None]
  - DEPRESSION [None]
  - PROSTATE CANCER [None]
  - CEREBROVASCULAR ACCIDENT [None]
